FAERS Safety Report 5149662-4 (Version None)
Quarter: 2006Q4

REPORT INFORMATION
  Report Type: 
  Country: None (occurrence: None)
  Receive Date: 20061113
  Receipt Date: 20060707
  Transmission Date: 20070319
  Serious: No
  Sender: FDA-Public Use
  Company Number: US-GLAXOSMITHKLINE-A0611449A

PATIENT
  Age: 74 Year
  Sex: Female

DRUGS (6)
  1. COREG [Suspect]
     Indication: HYPERTENSION
     Dosage: 25MG TWICE PER DAY
     Route: 048
     Dates: start: 20060203, end: 20060630
  2. NORVASC [Concomitant]
  3. BIOVITAL [Concomitant]
  4. DYAZIDE [Concomitant]
  5. CLONIDINE [Concomitant]
  6. DARVOCET [Concomitant]

REACTIONS (4)
  - DEPRESSION [None]
  - FATIGUE [None]
  - HEART RATE DECREASED [None]
  - NERVOUS SYSTEM DISORDER [None]
